FAERS Safety Report 24393757 (Version 1)
Quarter: 2024Q4

REPORT INFORMATION
  Report Type: Spontaneous
  Country: US (occurrence: US)
  Receive Date: 20241003
  Receipt Date: 20241003
  Transmission Date: 20250114
  Serious: No
  Sender: MERCK
  Company Number: US-009507513-2409USA008828

PATIENT
  Sex: Female
  Weight: 93 kg

DRUGS (6)
  1. WINREVAIR [Suspect]
     Active Substance: SOTATERCEPT-CSRK
     Indication: Product used for unknown indication
  2. REMODULIN [Suspect]
     Active Substance: TREPROSTINIL
     Indication: Pulmonary arterial hypertension
     Dosage: 0.1159 ?G/KG (SELF FILL WITH 3 ML PER CASSETTE, PUMP RATE OF 74 MCL PER HOUR),
     Route: 058
     Dates: start: 20230202
  3. TRAMADOL HCL [Concomitant]
     Active Substance: TRAMADOL HYDROCHLORIDE
  4. TYLENOL EXTRA STRENGTH [Concomitant]
     Active Substance: ACETAMINOPHEN
  5. TORSEMIDE [Concomitant]
     Active Substance: TORSEMIDE
  6. AMBRISENTAN [Concomitant]
     Active Substance: AMBRISENTAN

REACTIONS (3)
  - Diarrhoea [Unknown]
  - Injection site pruritus [Recovered/Resolved]
  - Headache [Unknown]
